FAERS Safety Report 10068926 (Version 2)
Quarter: 2014Q2

REPORT INFORMATION
  Report Type: Spontaneous
  Country: JP (occurrence: JP)
  Receive Date: 20140409
  Receipt Date: 20140409
  Transmission Date: 20141212
  Serious: Yes (Life-Threatening, Hospitalization, Other)
  Sender: FDA-Public Use
  Company Number: PHHY2014JP038095

PATIENT
  Age: 5 Year
  Sex: Male
  Weight: 15 kg

DRUGS (6)
  1. NEORAL [Suspect]
     Indication: NEPHROTIC SYNDROME
     Dosage: 60 MG, REPORTED AS 0.3 CC TWICE DAILY [0.6CC DAILY])
     Route: 048
     Dates: start: 20140115
  2. NEORAL [Suspect]
     Dosage: 0.8 ML, UNK
     Route: 048
     Dates: start: 20140120, end: 20140121
  3. NEORAL [Suspect]
     Dosage: 0.6 ML, DAILY
     Route: 048
     Dates: start: 20140331
  4. BREDININ [Concomitant]
     Indication: NEPHROTIC SYNDROME
     Dosage: 60 MG, UNK
     Dates: start: 20140110, end: 20140117
  5. MUCOSTA [Concomitant]
     Dosage: 100 MG, UNK
     Route: 048
     Dates: start: 20131219
  6. MEVALOTIN [Concomitant]
     Dosage: 20 MG, UNK
     Dates: start: 20140109

REACTIONS (4)
  - Renal failure acute [Recovered/Resolved]
  - Urine output decreased [Unknown]
  - Pulmonary oedema [Unknown]
  - Immunosuppressant drug level decreased [Unknown]
